FAERS Safety Report 10559255 (Version 1)
Quarter: 2014Q4

REPORT INFORMATION
  Report Type: Spontaneous
  Country: US (occurrence: US)
  Receive Date: 20141103
  Receipt Date: 20141103
  Transmission Date: 20150529
  Serious: No
  Sender: FDA-Public Use
  Company Number: US-BIOGENIDEC-2014BI112982

PATIENT
  Sex: Female

DRUGS (1)
  1. TYSABRI [Suspect]
     Active Substance: NATALIZUMAB
     Indication: MULTIPLE SCLEROSIS
     Route: 042
     Dates: start: 201406

REACTIONS (7)
  - Physiotherapy [Unknown]
  - General symptom [Unknown]
  - Muscular weakness [Unknown]
  - Balance disorder [Unknown]
  - Muscle spasticity [Unknown]
  - Feeling abnormal [Unknown]
  - Fatigue [Unknown]
